FAERS Safety Report 13211510 (Version 2)
Quarter: 2017Q1

REPORT INFORMATION
  Report Type: Spontaneous
  Country: JP (occurrence: JP)
  Receive Date: 20170210
  Receipt Date: 20170220
  Transmission Date: 20170428
  Serious: Yes (Other)
  Sender: FDA-Public Use
  Company Number: JP-GLAXOSMITHKLINE-JP2017JPN016325

PATIENT
  Age: 71 Year
  Sex: Female

DRUGS (3)
  1. ACYCLOVIR. [Suspect]
     Active Substance: ACYCLOVIR
     Indication: HERPES SIMPLEX ENCEPHALITIS
     Dosage: 10 MG/KG, TID
     Route: 041
  2. ACETAMINOPHEN. [Concomitant]
     Active Substance: ACETAMINOPHEN
     Dosage: UNK
  3. GLYCEROL [Concomitant]
     Active Substance: GLYCERIN
     Dosage: 200 ML, BID

REACTIONS (7)
  - Pyrexia [Recovered/Resolved]
  - Cerebral haemorrhage [Recovered/Resolved]
  - Depressed level of consciousness [Recovered/Resolved]
  - Lymphocytosis [Recovered/Resolved]
  - Cerebral ventricular rupture [Recovered/Resolved]
  - Vomiting [Recovered/Resolved]
  - Herpes simplex encephalitis [Recovered/Resolved]
